FAERS Safety Report 12351693 (Version 4)
Quarter: 2017Q1

REPORT INFORMATION
  Report Type: Report from Study
  Country: DE (occurrence: DE)
  Receive Date: 20160510
  Receipt Date: 20170315
  Transmission Date: 20170428
  Serious: Yes (Death, Other)
  Sender: FDA-Public Use
  Company Number: DE-CELGENEUS-062-POMAL-14074860

PATIENT

DRUGS (5)
  1. IMNOVID [Suspect]
     Active Substance: POMALIDOMIDE
     Indication: MYELOFIBROSIS
     Dosage: 0.5MG
     Route: 048
  2. RUXOLITINIB [Suspect]
     Active Substance: RUXOLITINIB
     Dosage: NOT PROVIDED
     Route: 065
  3. RUXOLITINIB [Suspect]
     Active Substance: RUXOLITINIB
     Dosage: 40MG
     Route: 065
  4. RUXOLITINIB [Suspect]
     Active Substance: RUXOLITINIB
     Indication: MYELOFIBROSIS
     Dosage: 20MG
     Route: 065
  5. RBC [Concomitant]
     Active Substance: HUMAN RED BLOOD CELL
     Indication: PRODUCT USED FOR UNKNOWN INDICATION
     Dosage: TRANSFUSION
     Route: 065

REACTIONS (19)
  - Death [Fatal]
  - Neuropathy peripheral [Unknown]
  - Peripheral sensory neuropathy [Recovered/Resolved]
  - Chest pain [Unknown]
  - Haemoglobin decreased [Unknown]
  - Dizziness [Unknown]
  - Musculoskeletal pain [Unknown]
  - Chronic myeloid leukaemia transformation [Unknown]
  - General symptom [Unknown]
  - Hyperuricaemia [Unknown]
  - Dyspnoea [Unknown]
  - General physical health deterioration [Unknown]
  - Infection [Unknown]
  - Therapy non-responder [Unknown]
  - Anaemia [Unknown]
  - Fatigue [Unknown]
  - Septic shock [Fatal]
  - Neutropenia [Unknown]
  - Oedema peripheral [Unknown]

NARRATIVE: CASE EVENT DATE: 20160519
